FAERS Safety Report 18555424 (Version 2)
Quarter: 2021Q1

REPORT INFORMATION
  Report Type: Spontaneous
  Country: US (occurrence: US)
  Receive Date: 20201127
  Receipt Date: 20210304
  Transmission Date: 20210419
  Serious: Yes (Hospitalization)
  Sender: FDA-Public Use
  Company Number: US-BRISTOL-MYERS SQUIBB COMPANY-BMS-2020-098758

PATIENT
  Age: 87 Year
  Sex: Male

DRUGS (2)
  1. NIVOLUMAB [Suspect]
     Active Substance: NIVOLUMAB
     Indication: RENAL CELL CARCINOMA
     Dosage: UNK
     Route: 065
     Dates: start: 20201028
  2. NIVOLUMAB [Suspect]
     Active Substance: NIVOLUMAB
     Indication: METASTASES TO LUNG

REACTIONS (8)
  - Blood creatine phosphokinase increased [Unknown]
  - Troponin increased [Unknown]
  - Fatigue [Unknown]
  - Malaise [Unknown]
  - Myalgia [Unknown]
  - Blood creatinine increased [Unknown]
  - Liver function test increased [Unknown]
  - Muscular weakness [Unknown]
